FAERS Safety Report 10095521 (Version 1)
Quarter: 2014Q2

REPORT INFORMATION
  Report Type: Spontaneous
  Country: BR (occurrence: BR)
  Receive Date: 20140422
  Receipt Date: 20140422
  Transmission Date: 20141212
  Serious: Yes (Hospitalization, Other)
  Sender: FDA-Public Use
  Company Number: BR-PFIZER INC-2014109392

PATIENT
  Age: 50 Year
  Sex: Male
  Weight: 74 kg

DRUGS (3)
  1. LIPITOR [Suspect]
     Indication: BLOOD CHOLESTEROL
     Dosage: 20 MG, 1X/DAY
     Route: 048
     Dates: start: 201312
  2. LYRICA [Suspect]
     Indication: POLYNEUROPATHY
     Dosage: 2 CAPSULES OF 150MG (300 MG), 2X/DAY
     Route: 048
     Dates: start: 20140416
  3. AMITRIPTYLINE [Concomitant]
     Indication: POLYNEUROPATHY
     Dosage: 2 TABLETS OF 25MG (50 MG), DAILY
     Dates: start: 201312

REACTIONS (3)
  - Abscess [Unknown]
  - Polyneuropathy [Unknown]
  - Benign pancreatic neoplasm [Unknown]
